FAERS Safety Report 22279165 (Version 3)
Quarter: 2023Q2

REPORT INFORMATION
  Report Type: Spontaneous
  Country: CA (occurrence: CA)
  Receive Date: 20230503
  Receipt Date: 20230628
  Transmission Date: 20230722
  Serious: Yes (Hospitalization, Other)
  Sender: FDA-Public Use
  Company Number: CA-PFIZER INC-202300068594

PATIENT
  Age: 76 Year
  Sex: Male

DRUGS (1)
  1. ABRILADA [Suspect]
     Active Substance: ADALIMUMAB-AFZB
     Indication: Crohn^s disease
     Dosage: 80 MG, WEEKLY
     Route: 058
     Dates: start: 20230421

REACTIONS (7)
  - Gastrointestinal disorder [Unknown]
  - Cardiac failure congestive [Unknown]
  - Rectal haemorrhage [Unknown]
  - Muscle spasms [Unknown]
  - Drug ineffective [Unknown]
  - Off label use [Unknown]
  - Off label use [Unknown]

NARRATIVE: CASE EVENT DATE: 20230401
